FAERS Safety Report 6050360-3 (Version None)
Quarter: 2009Q1

REPORT INFORMATION
  Report Type: 
  Country: None (occurrence: None)
  Receive Date: 20090121
  Receipt Date: 20090108
  Transmission Date: 20090719
  Serious: Yes (Other)
  Sender: FDA-Public Use
  Company Number: CERZ-1000473

PATIENT
  Age: 72 Year
  Sex: Female

DRUGS (3)
  1. CEREZYME [Suspect]
     Indication: GAUCHER'S DISEASE
     Dosage: 60 U/KG, Q2W, INTRAVENOUS; 30 U/KG, QW, INTRAVENOUS
     Route: 042
     Dates: start: 19970521
  2. CEREZYME [Suspect]
     Indication: GAUCHER'S DISEASE
     Dosage: 60 U/KG, Q2W, INTRAVENOUS; 30 U/KG, QW, INTRAVENOUS
     Route: 042
     Dates: start: 19980916
  3. CEREZYME [Suspect]
     Indication: GAUCHER'S DISEASE
     Dosage: 60 U/KG, Q2W, INTRAVENOUS; 30 U/KG, QW, INTRAVENOUS
     Route: 042
     Dates: start: 20000823

REACTIONS (14)
  - ABDOMINAL DISTENSION [None]
  - ANOREXIA [None]
  - BLOOD PRESSURE INADEQUATELY CONTROLLED [None]
  - CARPAL TUNNEL SYNDROME [None]
  - CEREBROVASCULAR ACCIDENT [None]
  - CONSTIPATION [None]
  - DEPRESSION [None]
  - DEVICE FAILURE [None]
  - DISCOMFORT [None]
  - EPILEPSY [None]
  - GLOBAL AMNESIA [None]
  - HIP ARTHROPLASTY [None]
  - TRIGGER FINGER [None]
  - WEIGHT INCREASED [None]
